FAERS Safety Report 10452610 (Version 2)
Quarter: 2014Q4

REPORT INFORMATION
  Report Type: Report from Study
  Country: TR (occurrence: TR)
  Receive Date: 20140915
  Receipt Date: 20141017
  Transmission Date: 20150528
  Serious: Yes (Death)
  Sender: FDA-Public Use
  Company Number: TR-ABBVIE-14K-161-1282089-00

PATIENT
  Age: 56 Year
  Sex: Male
  Weight: 63 kg

DRUGS (3)
  1. HUMIRA [Suspect]
     Active Substance: ADALIMUMAB
     Indication: ANKYLOSING SPONDYLITIS
     Route: 058
     Dates: start: 20130122, end: 20140729
  2. ECOPIRIN [Concomitant]
     Active Substance: ASPIRIN
     Indication: CARDIAC DISORDER
     Route: 048
  3. RAMIPRIL + HTCZ (DELIX) [Concomitant]
     Indication: HYPERTENSION
     Route: 048

REACTIONS (2)
  - Respiratory arrest [Fatal]
  - Lung infection [Fatal]

NARRATIVE: CASE EVENT DATE: 20140729
